FAERS Safety Report 22337630 (Version 2)
Quarter: 2023Q2

REPORT INFORMATION
  Report Type: Report from Study
  Country: GB (occurrence: GB)
  Receive Date: 20230518
  Receipt Date: 20230614
  Transmission Date: 20230722
  Serious: Yes (Other)
  Sender: FDA-Public Use
  Company Number: GB-JNJFOC-20230528951

PATIENT
  Age: 5 Decade
  Sex: Female

DRUGS (3)
  1. STELARA [Suspect]
     Active Substance: USTEKINUMAB
     Indication: Crohn^s disease
     Route: 058
     Dates: start: 2022
  2. STELARA [Suspect]
     Active Substance: USTEKINUMAB
     Route: 058
  3. ACETAMINOPHEN [Concomitant]
     Active Substance: ACETAMINOPHEN
     Indication: Product used for unknown indication

REACTIONS (8)
  - Kidney infection [Unknown]
  - Suture removal [Unknown]
  - Infection [Unknown]
  - Decreased immune responsiveness [Unknown]
  - Sinusitis [Unknown]
  - Product dose omission issue [Unknown]
  - Off label use [Unknown]
  - Product prescribing error [Unknown]
